FAERS Safety Report 18775419 (Version 1)
Quarter: 2021Q1

REPORT INFORMATION
  Report Type: Spontaneous
  Country: FR (occurrence: FR)
  Receive Date: 20210122
  Receipt Date: 20210122
  Transmission Date: 20210419
  Serious: Yes (Other)
  Sender: FDA-Public Use
  Company Number: FR-RECORDATI RARE DISEASE INC.-2021000130

PATIENT

DRUGS (6)
  1. VINCRISTINE HOSPIRA [Suspect]
     Active Substance: VINCRISTINE
     Indication: RHABDOMYOSARCOMA
     Dosage: 1 (UNITS NOT REPORTED) EVERY 1 WEEK
     Route: 042
     Dates: start: 20180214, end: 20180216
  2. IFOSFAMIDE EG [Suspect]
     Active Substance: IFOSFAMIDE
     Indication: RHABDOMYOSARCOMA
     Dosage: 1 (UNITS NOT REPORTED) EVERY 1 WEEK
     Route: 042
     Dates: start: 20180214, end: 20180216
  3. CYCLOPHOSPHAMIDE. [Suspect]
     Active Substance: CYCLOPHOSPHAMIDE
     Indication: RHABDOMYOSARCOMA
     Dosage: 7 MILLIGRAM
     Route: 048
     Dates: start: 20180914
  4. COSMEGEN [Suspect]
     Active Substance: DACTINOMYCIN
     Indication: RHABDOMYOSARCOMA
     Dosage: 1 (UNITS NOT REPORTED) EVERY 1 SECOND
     Route: 042
     Dates: start: 20180214, end: 20180816
  5. UROMITEXAN [Suspect]
     Active Substance: MESNA
     Indication: CHEMOTHERAPY UROTHELIAL TOXICITY ATTENUATION
     Dosage: 1 (UNITS NOT REPORTED) EVERY 1 WEEK
     Route: 042
     Dates: start: 20180214, end: 20180216
  6. NAVELBINE [Suspect]
     Active Substance: VINORELBINE TARTRATE
     Indication: RHABDOMYOSARCOMA
     Dosage: 7.4 MILLIGRAM
     Route: 042
     Dates: start: 20180914

REACTIONS (1)
  - Renal tubular disorder [Not Recovered/Not Resolved]

NARRATIVE: CASE EVENT DATE: 20190208
